FAERS Safety Report 22995457 (Version 6)
Quarter: 2024Q1

REPORT INFORMATION
  Report Type: Spontaneous
  Country: JP (occurrence: None)
  Receive Date: 20230927
  Receipt Date: 20240313
  Transmission Date: 20240410
  Serious: Yes (Hospitalization, Other)
  Sender: FDA-Public Use
  Company Number: 2023A183074

PATIENT
  Age: 72 Year
  Sex: Male
  Weight: 61 kg

DRUGS (20)
  1. IMFINZI [Suspect]
     Active Substance: DURVALUMAB
     Indication: Bile duct cancer
     Route: 041
     Dates: start: 20230227, end: 20230724
  2. IMFINZI [Suspect]
     Active Substance: DURVALUMAB
     Indication: Bile duct cancer
     Dosage: 1500.0MG UNKNOWN
     Route: 041
     Dates: start: 20230831
  3. GEMZAR [Suspect]
     Active Substance: GEMCITABINE HYDROCHLORIDE
     Indication: Bile duct cancer
     Dosage: DOSE UNKNOWN
     Dates: start: 20230227, end: 20230731
  4. GEMZAR [Suspect]
     Active Substance: GEMCITABINE HYDROCHLORIDE
     Indication: Bile duct cancer
     Dosage: DOSE UNKNOWN
     Dates: start: 20231214, end: 20231214
  5. PREDNISOLONE ACETATE [Suspect]
     Active Substance: PREDNISOLONE ACETATE
     Indication: Colitis
     Dosage: DOSE UNKNOWN
     Route: 042
     Dates: start: 20230227, end: 20230731
  6. PREDNISOLONE ACETATE [Suspect]
     Active Substance: PREDNISOLONE ACETATE
     Indication: Colitis
     Dosage: DOSE UNKNOWN
     Route: 042
     Dates: start: 20230809, end: 20230810
  7. PREDNISOLONE [Suspect]
     Active Substance: PREDNISOLONE
     Indication: Colitis
     Route: 048
     Dates: start: 20230811, end: 20230813
  8. PREDNISOLONE [Suspect]
     Active Substance: PREDNISOLONE
     Indication: Colitis
     Route: 048
     Dates: start: 20230814, end: 20230816
  9. PREDNISOLONE [Suspect]
     Active Substance: PREDNISOLONE
     Indication: Colitis
     Route: 048
     Dates: start: 20230817, end: 20230819
  10. PREDNISOLONE [Suspect]
     Active Substance: PREDNISOLONE
     Indication: Colitis
     Route: 048
     Dates: start: 20230820, end: 20230822
  11. PREDNISOLONE [Suspect]
     Active Substance: PREDNISOLONE
     Indication: Colitis
     Route: 048
     Dates: start: 20230823, end: 20230825
  12. PREDNISOLONE [Suspect]
     Active Substance: PREDNISOLONE
     Indication: Colitis
     Route: 048
     Dates: start: 20230826, end: 20230828
  13. PREDNISOLONE [Suspect]
     Active Substance: PREDNISOLONE
     Indication: Colitis
     Route: 048
     Dates: start: 20230928, end: 20230929
  14. PREDNISOLONE [Suspect]
     Active Substance: PREDNISOLONE
     Indication: Colitis
     Route: 048
     Dates: start: 20230930, end: 20231002
  15. PREDNISOLONE [Suspect]
     Active Substance: PREDNISOLONE
     Indication: Colitis
     Route: 048
     Dates: start: 20231003, end: 20231005
  16. PREDNISOLONE [Suspect]
     Active Substance: PREDNISOLONE
     Indication: Colitis
     Route: 048
     Dates: start: 20231006, end: 20231007
  17. PREDNISOLONE [Suspect]
     Active Substance: PREDNISOLONE
     Indication: Colitis
     Route: 048
     Dates: start: 20231009, end: 20231011
  18. PREDNISOLONE [Suspect]
     Active Substance: PREDNISOLONE
     Indication: Colitis
     Route: 048
     Dates: start: 20231012, end: 20231014
  19. PREDNISOLONE [Suspect]
     Active Substance: PREDNISOLONE
     Indication: Colitis
     Route: 048
     Dates: start: 20231015, end: 20231017
  20. CISPLATIN [Concomitant]
     Active Substance: CISPLATIN
     Indication: Bile duct cancer
     Dosage: DOSE UNKNOWN
     Dates: start: 20230227, end: 20230731

REACTIONS (7)
  - Colitis [Recovering/Resolving]
  - Cholecystitis [Unknown]
  - Cholangitis [Unknown]
  - Thrombophlebitis migrans [Recovering/Resolving]
  - Cerebral infarction [Recovering/Resolving]
  - Cytopenia [Unknown]
  - Candida infection [Recovered/Resolved]

NARRATIVE: CASE EVENT DATE: 20230728
